FAERS Safety Report 24284766 (Version 1)
Quarter: 2024Q3

REPORT INFORMATION
  Report Type: Spontaneous
  Country: CN (occurrence: CN)
  Receive Date: 20240905
  Receipt Date: 20240905
  Transmission Date: 20241017
  Serious: Yes (Hospitalization)
  Sender: EMD SERONO INC
  Company Number: CN-Merck Healthcare KGaA-2024046982

PATIENT
  Age: 88 Year
  Sex: Female
  Weight: 75 kg

DRUGS (4)
  1. GLUCOPHAGE [Suspect]
     Active Substance: METFORMIN HYDROCHLORIDE
     Indication: Diabetes mellitus
     Route: 048
     Dates: start: 20240820, end: 20240822
  2. REPAGLINIDE [Suspect]
     Active Substance: REPAGLINIDE
     Indication: Blood glucose increased
     Route: 048
     Dates: start: 20240820, end: 20240822
  3. VOGLIBOSE [Suspect]
     Active Substance: VOGLIBOSE
     Indication: Blood glucose increased
     Route: 048
     Dates: start: 20240820, end: 20240822
  4. DAPAGLIFLOZIN [Suspect]
     Active Substance: DAPAGLIFLOZIN
     Indication: Blood glucose increased
     Route: 048
     Dates: start: 20240820, end: 20240822

REACTIONS (1)
  - Hypoglycaemic coma [Recovering/Resolving]

NARRATIVE: CASE EVENT DATE: 20240822
